FAERS Safety Report 7082609-2 (Version None)
Quarter: 2010Q4

REPORT INFORMATION
  Report Type: 
  Country: None (occurrence: None)
  Receive Date: 20101025
  Receipt Date: 20101008
  Transmission Date: 20110411
  Serious: Yes (Other)
  Sender: FDA-Public Use
  Company Number: TUK2010A00280

PATIENT
  Sex: Female

DRUGS (1)
  1. ACTOS [Suspect]
     Indication: DIABETES MELLITUS
     Dosage: 30 MG (30 MG, 1 IN 1 D), ORAL
     Route: 048
     Dates: start: 20100601, end: 20100801

REACTIONS (2)
  - ANGINA PECTORIS [None]
  - CONDITION AGGRAVATED [None]
